FAERS Safety Report 6390885-4 (Version None)
Quarter: 2009Q4

REPORT INFORMATION
  Report Type: 
  Country: None (occurrence: None)
  Receive Date: 20091006
  Receipt Date: 20090929
  Transmission Date: 20100525
  Serious: Yes (Disabling)
  Sender: FDA-Public Use
  Company Number: GB-VALEANT-2009VX001912

PATIENT
  Age: 56 Year
  Sex: Male

DRUGS (1)
  1. EFUDIX [Suspect]
     Indication: ACTINIC KERATOSIS
     Route: 061
     Dates: start: 19990705, end: 20080830

REACTIONS (1)
  - PROCTITIS [None]
